FAERS Safety Report 4325171-7 (Version None)
Quarter: 2004Q1

REPORT INFORMATION
  Report Type: 
  Country: None (occurrence: None)
  Receive Date: 20040326
  Receipt Date: 20030606
  Transmission Date: 20041129
  Serious: Yes (Disabling)
  Sender: FDA-Public Use
  Company Number: US-MERCK-0306USA01061

PATIENT
  Age: 62 Year
  Sex: Female
  Weight: 70 kg

DRUGS (4)
  1. CLONIDINE [Concomitant]
     Indication: BLOOD PRESSURE
     Route: 048
     Dates: start: 20030331
  2. LABETALOL HYDROCHLORIDE [Concomitant]
     Indication: BLOOD PRESSURE
     Route: 048
     Dates: start: 20030404
  3. COZAAR [Suspect]
     Indication: HYPERTENSION
     Route: 048
     Dates: start: 20030428, end: 20030519
  4. COZAAR [Suspect]
     Route: 048

REACTIONS (6)
  - ANAEMIA [None]
  - ARTHRALGIA [None]
  - BLOOD PRESSURE INCREASED [None]
  - JOINT SWELLING [None]
  - LUPUS-LIKE SYNDROME [None]
  - MUSCLE TIGHTNESS [None]
